FAERS Safety Report 15031972 (Version 1)
Quarter: 2018Q2

REPORT INFORMATION
  Report Type: Spontaneous
  Country: US (occurrence: US)
  Receive Date: 20180619
  Receipt Date: 20180619
  Transmission Date: 20180711
  Serious: Yes (Hospitalization)
  Sender: FDA-Public Use
  Company Number: US-MYLANLABS-2018M1042151

PATIENT
  Age: 61 Year
  Sex: Male

DRUGS (1)
  1. GABAPENTIN. [Suspect]
     Active Substance: GABAPENTIN
     Indication: PAIN IN EXTREMITY
     Route: 065

REACTIONS (3)
  - Toxicity to various agents [Recovered/Resolved]
  - Myoclonus [Recovered/Resolved]
  - Altered state of consciousness [Recovered/Resolved]
